FAERS Safety Report 24084974 (Version 1)
Quarter: 2024Q3

REPORT INFORMATION
  Report Type: Spontaneous
  Country: JP (occurrence: JP)
  Receive Date: 20240712
  Receipt Date: 20240712
  Transmission Date: 20241016
  Serious: Yes (Hospitalization, Other)
  Sender: ORGANON
  Company Number: JP-MLMSERVICE-20230807-4469245-1

PATIENT
  Age: 85 Year
  Sex: Female

DRUGS (14)
  1. HYDROCHLOROTHIAZIDE\LOSARTAN POTASSIUM [Interacting]
     Active Substance: HYDROCHLOROTHIAZIDE\LOSARTAN POTASSIUM
     Dosage: 1 TABLET, QD
     Route: 048
  2. CALCIUM ASPARTATE [Interacting]
     Active Substance: CALCIUM ASPARTATE
     Indication: Osteoporosis
     Dosage: 400 MILLIGRAM, QD
  3. ELDECALCITOL [Interacting]
     Active Substance: ELDECALCITOL
     Indication: Osteoporosis
     Dosage: 0.75 MICROGRAM, QD
  4. CELECOXIB [Interacting]
     Active Substance: CELECOXIB
     Dosage: 200 MILLIGRAM, QD
  5. FUROSEMIDE [Interacting]
     Active Substance: FUROSEMIDE
     Indication: Oedema peripheral
     Dosage: 40 MILLIGRAM, QD
  6. REBAMIPIDE [Concomitant]
     Active Substance: REBAMIPIDE
     Dosage: 200 MILLIGRAM, QD
  7. BENSERAZIDE\LEVODOPA [Concomitant]
     Active Substance: BENSERAZIDE\LEVODOPA
     Dosage: 2 TABLETS, QD
  8. FAMOTIDINE [Concomitant]
     Active Substance: FAMOTIDINE
     Dosage: 40 MILLIGRAM, QD
  9. PIRENZEPINE [Concomitant]
     Active Substance: PIRENZEPINE
     Dosage: 50 MILLIGRAM, QD
  10. SITAGLIPTIN [Concomitant]
     Active Substance: SITAGLIPTIN
     Dosage: 50 MILLIGRAM, QD
  11. ICOSAPENT ETHYL [Concomitant]
     Active Substance: ICOSAPENT ETHYL
     Dosage: 900 MILLIGRAM, QD
  12. ATORVASTATIN [Concomitant]
     Active Substance: ATORVASTATIN
     Dosage: 10 MILLIGRAM, QD
  13. EZETIMIBE [Concomitant]
     Active Substance: EZETIMIBE
     Dosage: 10 MILLIGRAM, QD
  14. ZOLPIDEM [Concomitant]
     Active Substance: ZOLPIDEM TARTRATE
     Dosage: 5 MILLIGRAM, QD

REACTIONS (2)
  - Milk-alkali syndrome [Recovered/Resolved]
  - Drug interaction [Recovered/Resolved]
